FAERS Safety Report 6260491-0 (Version None)
Quarter: 2009Q3

REPORT INFORMATION
  Report Type: 
  Country: None (occurrence: None)
  Receive Date: 20090708
  Receipt Date: 20090630
  Transmission Date: 20100115
  Serious: Yes (Death, Hospitalization)
  Sender: FDA-Public Use
  Company Number: GB-PFIZER INC-2009201073

PATIENT
  Age: 47 Year

DRUGS (2)
  1. HYDROCORTISONE ACETATE AND HYDROCORTISONE AND HYDROCORTISONE CIPIONATE [Suspect]
     Indication: NAUSEA
     Dosage: 100 MG, AS NEEDED
     Route: 030
  2. METOCLOPRAMIDE [Suspect]
     Indication: NAUSEA
     Dosage: 10 MG, AS NEEDED
     Route: 042

REACTIONS (10)
  - BLOOD AMYLASE INCREASED [None]
  - BLOOD CREATINE PHOSPHOKINASE INCREASED [None]
  - BLOOD CREATININE INCREASED [None]
  - BLOOD UREA INCREASED [None]
  - CARDIAC ARREST [None]
  - HYPERTENSION [None]
  - HYPOGLYCAEMIA [None]
  - PHAEOCHROMOCYTOMA [None]
  - PULMONARY OEDEMA [None]
  - TROPONIN T INCREASED [None]
